FAERS Safety Report 19884105 (Version 1)
Quarter: 2021Q3

REPORT INFORMATION
  Report Type: Spontaneous
  Country: US (occurrence: US)
  Receive Date: 20210924
  Receipt Date: 20210924
  Transmission Date: 20211014
  Serious: Yes (Life-Threatening, Other)
  Sender: FDA-Public Use
  Company Number: None

PATIENT
  Age: 22 Year
  Sex: Female
  Weight: 67.5 kg

DRUGS (4)
  1. PRENATAL [Concomitant]
     Active Substance: VITAMINS
  2. CYTOTEC [Suspect]
     Active Substance: MISOPROSTOL
     Indication: INDUCED LABOUR
     Route: 067
     Dates: start: 20200925
  3. FOLATE [Concomitant]
     Active Substance: FOLATE SODIUM
  4. ASPIRIN (LOW DOSE) [Concomitant]

REACTIONS (4)
  - Drug ineffective [None]
  - Syncope [None]
  - Uterine hyperstimulation [None]
  - Screaming [None]

NARRATIVE: CASE EVENT DATE: 20200925
